FAERS Safety Report 17655464 (Version 2)
Quarter: 2020Q2

REPORT INFORMATION
  Report Type: Spontaneous
  Country: US (occurrence: US)
  Receive Date: 20200410
  Receipt Date: 20200511
  Transmission Date: 20200713
  Serious: No
  Sender: FDA-Public Use
  Company Number: US-PFIZER INC-2020145475

PATIENT
  Age: 60 Year
  Sex: Female

DRUGS (1)
  1. METHOTREXATE SODIUM. [Suspect]
     Active Substance: METHOTREXATE SODIUM
     Indication: RHEUMATOID ARTHRITIS
     Dosage: UNK

REACTIONS (8)
  - Kyphosis [Unknown]
  - Pain [Unknown]
  - Arthritis [Unknown]
  - Osteoarthritis [Unknown]
  - Bone disorder [Unknown]
  - Drug ineffective [Unknown]
  - Decreased immune responsiveness [Unknown]
  - Hypertension [Unknown]
